FAERS Safety Report 25125068 (Version 1)
Quarter: 2025Q1

REPORT INFORMATION
  Report Type: Spontaneous
  Country: DE (occurrence: DE)
  Receive Date: 20250326
  Receipt Date: 20250326
  Transmission Date: 20250408
  Serious: Yes (Other)
  Sender: BAYER HEALTHCARE PHARMACEUTICALS INC.
  Company Number: DE-BAYER-2025A036320

PATIENT
  Sex: Female

DRUGS (1)
  1. KYLEENA [Suspect]
     Active Substance: LEVONORGESTREL
     Dosage: 17.5?G/DAY
     Route: 015
     Dates: start: 202210

REACTIONS (8)
  - Gastrointestinal fungal infection [None]
  - Candida infection [None]
  - Headache [None]
  - Dizziness [None]
  - Anal pruritus [None]
  - Frequent bowel movements [None]
  - Asthenia [None]
  - Eczema [None]
